FAERS Safety Report 7017487-0 (Version None)
Quarter: 2010Q3

REPORT INFORMATION
  Report Type: 
  Country: None (occurrence: None)
  Receive Date: 20100928
  Receipt Date: 20100920
  Transmission Date: 20110219
  Serious: Yes (Other)
  Sender: FDA-Public Use
  Company Number: CA-PFIZER INC-2010119644

PATIENT
  Age: 60 Year
  Sex: Female

DRUGS (3)
  1. XALATAN [Suspect]
     Dosage: UNK
     Dates: start: 20100101
  2. PANTOLOC ^BYK MADAUS^ [Concomitant]
     Dosage: UNK
  3. SYNTHROID [Concomitant]
     Dosage: UNK

REACTIONS (3)
  - HEADACHE [None]
  - MUSCLE SPASMS [None]
  - MUSCULOSKELETAL STIFFNESS [None]
